FAERS Safety Report 25821445 (Version 1)
Quarter: 2025Q3

REPORT INFORMATION
  Report Type: Report from Study
  Country: CO (occurrence: CO)
  Receive Date: 20250919
  Receipt Date: 20250919
  Transmission Date: 20251020
  Serious: Yes (Death)
  Sender: ALEXION PHARMACEUTICALS
  Company Number: CO-AstraZeneca-CH-00952368A

PATIENT
  Age: 89 Year
  Sex: Male
  Weight: 95 kg

DRUGS (1)
  1. OLAPARIB [Suspect]
     Active Substance: OLAPARIB
     Indication: Prostate cancer
     Dosage: 100 MILLIGRAM, Q12H
     Dates: start: 20250616, end: 20250915

REACTIONS (1)
  - Death [Fatal]

NARRATIVE: CASE EVENT DATE: 20250915
